FAERS Safety Report 20895018 (Version 1)
Quarter: 2022Q2

REPORT INFORMATION
  Report Type: Spontaneous
  Country: US (occurrence: US)
  Receive Date: 20220531
  Receipt Date: 20220531
  Transmission Date: 20220721
  Serious: Yes (Other)
  Sender: FDA-Public Use
  Company Number: US-TEVA-2022-US-2041558

PATIENT
  Sex: Female

DRUGS (1)
  1. KLONOPIN [Suspect]
     Active Substance: CLONAZEPAM
     Route: 065

REACTIONS (7)
  - Craniocerebral injury [Not Recovered/Not Resolved]
  - Allergic reaction to excipient [Unknown]
  - Wheezing [Unknown]
  - Oropharyngeal pain [Unknown]
  - Headache [Unknown]
  - Illness [Not Recovered/Not Resolved]
  - Adverse drug reaction [Unknown]
